FAERS Safety Report 5293081-7 (Version None)
Quarter: 2007Q2

REPORT INFORMATION
  Report Type: 
  Country: None (occurrence: None)
  Receive Date: 20070411
  Receipt Date: 20070330
  Transmission Date: 20071010
  Serious: Yes (Hospitalization, Other)
  Sender: FDA-Public Use
  Company Number: PHBS2007NO05790

PATIENT
  Age: 83 Year
  Sex: Female

DRUGS (7)
  1. ALBYL-E [Suspect]
     Route: 048
  2. FOSAMAX [Suspect]
     Route: 048
  3. IMDUR [Concomitant]
  4. SELO-ZOK [Concomitant]
  5. SAROTEX [Concomitant]
  6. SOBRIL [Concomitant]
  7. DICLOFENAC SODIUM [Suspect]
     Indication: PAIN
     Route: 048

REACTIONS (18)
  - BLOOD CALCIUM DECREASED [None]
  - BLOOD CREATINE PHOSPHOKINASE INCREASED [None]
  - BLOOD SODIUM DECREASED [None]
  - BRAIN NATRIURETIC PEPTIDE INCREASED [None]
  - C-REACTIVE PROTEIN INCREASED [None]
  - CHEST PAIN [None]
  - DUODENAL ULCER [None]
  - ENDOSCOPY GASTROINTESTINAL [None]
  - GASTROINTESTINAL HAEMORRHAGE [None]
  - GENERAL PHYSICAL HEALTH DETERIORATION [None]
  - HAEMOGLOBIN DECREASED [None]
  - IRON BINDING CAPACITY TOTAL DECREASED [None]
  - OESOPHAGEAL ULCER [None]
  - PLATELET COUNT INCREASED [None]
  - PLEURAL DISORDER [None]
  - RED BLOOD CELL SEDIMENTATION RATE INCREASED [None]
  - VITAMIN B12 INCREASED [None]
  - WHITE BLOOD CELL COUNT INCREASED [None]
